FAERS Safety Report 11508636 (Version 21)
Quarter: 2018Q4

REPORT INFORMATION
  Report Type: Spontaneous
  Country: US (occurrence: US)
  Receive Date: 20150915
  Receipt Date: 20181218
  Transmission Date: 20190204
  Serious: Yes (Hospitalization)
  Sender: FDA-Public Use
  Company Number: US-ACTELION-A-NJ2015-123871

PATIENT
  Age: 73 Year
  Sex: Male
  Weight: 97.51 kg

DRUGS (7)
  1. VELETRI [Suspect]
     Active Substance: EPOPROSTENOL
     Dosage: 23 NG/KG, PER MIN
     Route: 042
  2. VELETRI [Suspect]
     Active Substance: EPOPROSTENOL
     Dosage: 19 NG/KG, PER MIN
     Route: 042
     Dates: start: 20141118
  3. REVATIO [Concomitant]
     Active Substance: SILDENAFIL CITRATE
  4. OXYGEN. [Concomitant]
     Active Substance: OXYGEN
  5. VELETRI [Suspect]
     Active Substance: EPOPROSTENOL
     Dosage: 21 NG/KG, PER MIN
     Route: 042
  6. VELETRI [Suspect]
     Active Substance: EPOPROSTENOL
     Indication: PULMONARY ARTERIAL HYPERTENSION
     Dosage: 23 NG/KG, PER MIN
     Route: 042
  7. VELETRI [Suspect]
     Active Substance: EPOPROSTENOL
     Dosage: 20 NG/KG, PER MIN
     Route: 042

REACTIONS (18)
  - Catheter site infection [Unknown]
  - Decreased activity [Unknown]
  - Dyspnoea exertional [Unknown]
  - Diarrhoea [Unknown]
  - Pain in jaw [Unknown]
  - Pain in extremity [Unknown]
  - Hospitalisation [Unknown]
  - Device dislocation [Unknown]
  - Fatigue [Unknown]
  - Arthralgia [Unknown]
  - Catheter site discharge [Unknown]
  - Oxygen saturation decreased [Unknown]
  - Appetite disorder [Unknown]
  - Cardiac failure [Unknown]
  - Rash [Recovered/Resolved]
  - Catheter placement [Unknown]
  - Dyspnoea [Unknown]
  - Oxygen therapy [Unknown]
